FAERS Safety Report 6429794 (Version 5)
Quarter: 2020Q3

REPORT INFORMATION
  Report Type: Report from Study
  Country: US (occurrence: US)
  Receive Date: 20070928
  Receipt Date: 20090212
  Transmission Date: 20201105
  Serious: Yes (Life-Threatening, Hospitalization, Other)
  Sender: FDA-Public Use
  Company Number: US-ASTRAZENECA-2007UW22337

PATIENT
  Age: 42 Year
  Sex: Female
  Weight: 76 kg

DRUGS (11)
  1. DOXORUBICIN [Concomitant]
     Active Substance: DOXORUBICIN
     Indication: BREAST CANCER
     Dosage: 4 CYCLES
     Route: 051
     Dates: start: 20041111, end: 20041227
  2. PACLITAXEL. [Concomitant]
     Active Substance: PACLITAXEL
     Indication: BREAST CANCER
     Dosage: 3 CYCLES
     Route: 051
     Dates: start: 20050110, end: 20050207
  3. TAMOXIFEN CITRATE. [Concomitant]
     Active Substance: TAMOXIFEN CITRATE
     Dosage: 3 CYCLES
     Route: 048
     Dates: start: 20060119, end: 20060330
  4. ZOLADEX [Concomitant]
     Active Substance: GOSERELIN ACETATE
     Indication: BREAST CANCER
     Dosage: 16 CYCLES
     Route: 051
     Dates: start: 20060330, end: 20070630
  5. FASLODEX [Suspect]
     Active Substance: FULVESTRANT
     Indication: BREAST CANCER METASTATIC
     Route: 030
     Dates: start: 20070906
  6. FASLODEX [Suspect]
     Active Substance: FULVESTRANT
     Route: 030
     Dates: start: 20070920
  7. VITAMINS [Concomitant]
     Active Substance: VITAMINS
  8. CYCLOPHOSPHAMIDE. [Concomitant]
     Active Substance: CYCLOPHOSPHAMIDE
     Indication: BREAST CANCER
     Dosage: 4 CYCLES
     Route: 051
     Dates: start: 20041111, end: 20041227
  9. TAMOXIFEN CITRATE. [Concomitant]
     Active Substance: TAMOXIFEN CITRATE
     Indication: BREAST CANCER
     Dosage: 17 CYCLES
     Route: 048
     Dates: start: 20060330, end: 200708
  10. CEDIRANIB. [Suspect]
     Active Substance: CEDIRANIB
     Indication: BREAST CANCER METASTATIC
     Route: 048
     Dates: start: 20070906
  11. CALCIUM [Concomitant]
     Active Substance: CALCIUM

REACTIONS (1)
  - Hypertension [Recovered/Resolved]

NARRATIVE: CASE EVENT DATE: 20070920
